FAERS Safety Report 6369236-7 (Version None)
Quarter: 2009Q3

REPORT INFORMATION
  Report Type: 
  Country: None (occurrence: None)
  Receive Date: 20090916
  Receipt Date: 20090908
  Transmission Date: 20100115
  Serious: Yes (Other)
  Sender: FDA-Public Use
  Company Number: ADR19692009

PATIENT
  Sex: Male

DRUGS (5)
  1. SERTRALINE HCL [Suspect]
  2. LAMOTRIGINE [Suspect]
  3. LITHIUM [Concomitant]
  4. OLANZAPINE [Concomitant]
  5. ZIPRASIDONE HCL [Concomitant]

REACTIONS (3)
  - AGITATION [None]
  - DISORIENTATION [None]
  - DRUG INTERACTION [None]
